FAERS Safety Report 6086482-0 (Version None)
Quarter: 2009Q1

REPORT INFORMATION
  Report Type: 
  Country: None (occurrence: None)
  Receive Date: 20090223
  Receipt Date: 20090219
  Transmission Date: 20090719
  Serious: Yes (Life-Threatening, Other)
  Sender: FDA-Public Use
  Company Number: PHEH2009US01862

PATIENT
  Age: 69 Year
  Sex: Female

DRUGS (3)
  1. DIOVAN [Suspect]
     Dosage: 320 MG, UNK
  2. DIOVAN HCT [Suspect]
     Dosage: 160/12.5 MG
  3. MUSCLE RELAXANTS [Suspect]

REACTIONS (5)
  - APPARENT DEATH [None]
  - BRADYCARDIA [None]
  - PALPITATIONS [None]
  - TACHYCARDIA [None]
  - URINARY INCONTINENCE [None]
